FAERS Safety Report 17750536 (Version 1)
Quarter: 2020Q2

REPORT INFORMATION
  Report Type: Spontaneous
  Country: US (occurrence: US)
  Receive Date: 20200506
  Receipt Date: 20200506
  Transmission Date: 20200714
  Serious: Yes (Hospitalization)
  Sender: FDA-Public Use
  Company Number: None

PATIENT
  Sex: Female

DRUGS (1)
  1. BOSULIF [Suspect]
     Active Substance: BOSUTINIB MONOHYDRATE
     Indication: CHRONIC MYELOID LEUKAEMIA
     Route: 048
     Dates: start: 20191125

REACTIONS (7)
  - Blister [None]
  - Urinary tract infection [None]
  - Bronchitis [None]
  - Therapy interrupted [None]
  - Diarrhoea [None]
  - Gastritis [None]
  - Therapy change [None]
